FAERS Safety Report 6291146-4 (Version None)
Quarter: 2009Q3

REPORT INFORMATION
  Report Type: 
  Country: None (occurrence: None)
  Receive Date: 20090730
  Receipt Date: 20090729
  Transmission Date: 20100115
  Serious: Yes (Other)
  Sender: FDA-Public Use
  Company Number: B0456390A

PATIENT
  Sex: Female
  Weight: 77.5 kg

DRUGS (2)
  1. SEROXAT [Suspect]
     Indication: ANXIETY
     Dosage: 20MG TWICE PER DAY
     Route: 048
     Dates: start: 19950101
  2. SOLPADOL (SANOFI-AVENTIS) [Concomitant]

REACTIONS (12)
  - AGGRESSION [None]
  - ANGER [None]
  - DEPRESSED MOOD [None]
  - DIZZINESS [None]
  - DRUG DEPENDENCE [None]
  - DRUG INEFFECTIVE [None]
  - DYSKINESIA [None]
  - EMOTIONAL DISORDER [None]
  - HOSTILITY [None]
  - NIGHTMARE [None]
  - VOMITING [None]
  - WITHDRAWAL SYNDROME [None]
